FAERS Safety Report 24799041 (Version 3)
Quarter: 2025Q1

REPORT INFORMATION
  Report Type: Spontaneous
  Country: AU (occurrence: AU)
  Receive Date: 20250102
  Receipt Date: 20250110
  Transmission Date: 20250409
  Serious: Yes (Other)
  Sender: MYLAN
  Company Number: AU-MYLANLABS-2024M1117641

PATIENT
  Age: 22 Year
  Sex: Male

DRUGS (1)
  1. CLOZARIL [Suspect]
     Active Substance: CLOZAPINE
     Indication: Schizophrenia
     Dosage: 300 MILLIGRAM, PM (AT NIGHT)
     Route: 048
     Dates: start: 20241119

REACTIONS (6)
  - Chest pain [Not Recovered/Not Resolved]
  - Electrocardiogram ST segment elevation [Unknown]
  - Electrocardiogram repolarisation abnormality [Unknown]
  - Gastrooesophageal reflux disease [Unknown]
  - Blood test abnormal [Unknown]
  - Blood creatine phosphokinase increased [Recovered/Resolved]

NARRATIVE: CASE EVENT DATE: 20241217
